FAERS Safety Report 4400718-0 (Version None)
Quarter: 2004Q3

REPORT INFORMATION
  Report Type: 
  Country: None (occurrence: None)
  Receive Date: 20040719
  Receipt Date: 20040709
  Transmission Date: 20050211
  Serious: Yes (Hospitalization, Other)
  Sender: FDA-Public Use
  Company Number: US-AMGEN-US083197

PATIENT
  Age: 52 Year
  Sex: Female

DRUGS (3)
  1. EPOGEN [Suspect]
     Indication: PRE-EXISTING DISEASE
     Route: 058
     Dates: start: 20040701
  2. INTERFERON [Concomitant]
     Dates: start: 20040501
  3. RIBAVIRIN [Concomitant]
     Dates: start: 20040501

REACTIONS (5)
  - ASTHENIA [None]
  - BONE MARROW DEPRESSION [None]
  - MALAISE [None]
  - RASH MACULO-PAPULAR [None]
  - THROMBOCYTOPENIA [None]
